FAERS Safety Report 9788432 (Version 2)
Quarter: 2014Q1

REPORT INFORMATION
  Report Type: Spontaneous
  Country: US (occurrence: US)
  Receive Date: 20131230
  Receipt Date: 20140204
  Transmission Date: 20141002
  Serious: Yes (Death)
  Sender: FDA-Public Use
  Company Number: US-PFIZER INC-2013368931

PATIENT
  Age: 59 Year
  Sex: Female
  Weight: 138 kg

DRUGS (1)
  1. PROTONIX [Suspect]
     Dosage: 40 MG, 1X/DAY
     Dates: end: 20131206

REACTIONS (6)
  - Pneumonia viral [Fatal]
  - Pulmonary oedema [Fatal]
  - Viral sepsis [Fatal]
  - Diabetic ulcer [Fatal]
  - Renal failure acute [Fatal]
  - Blood glucose increased [Not Recovered/Not Resolved]
